FAERS Safety Report 17614404 (Version 1)
Quarter: 2020Q2

REPORT INFORMATION
  Report Type: Report from Study
  Country: BR (occurrence: BR)
  Receive Date: 20200402
  Receipt Date: 20200402
  Transmission Date: 20200713
  Serious: Yes (Death, Hospitalization)
  Sender: FDA-Public Use
  Company Number: BR-EMD SERONO-9155294

PATIENT
  Sex: Female

DRUGS (1)
  1. REBIF [Suspect]
     Active Substance: INTERFERON BETA-1A
     Indication: MULTIPLE SCLEROSIS
     Route: 058
     Dates: start: 20130204

REACTIONS (8)
  - Multiple sclerosis [Fatal]
  - Oedema [Fatal]
  - Septic shock [Fatal]
  - Neurogenic bladder [Fatal]
  - Swelling [Fatal]
  - Pyelonephritis [Fatal]
  - Pulmonary embolism [Fatal]
  - Pneumonia [Fatal]
